FAERS Safety Report 7400312 (Version 3)
Quarter: 2014Q4

REPORT INFORMATION
  Report Type: Spontaneous
  Country: US (occurrence: US)
  Receive Date: 20100525
  Receipt Date: 20141002
  Transmission Date: 20150529
  Serious: Yes (Hospitalization)
  Sender: FDA-Public Use
  Company Number: US-JNJFOC-20100504245

PATIENT
  Age: 11 Week
  Sex: Male

DRUGS (2)
  1. CONCENTRATED TYLENOL INFANTS [Suspect]
     Active Substance: ACETAMINOPHEN
     Route: 048
  2. CONCENTRATED TYLENOL INFANTS [Suspect]
     Active Substance: ACETAMINOPHEN
     Indication: PRODUCT USED FOR UNKNOWN INDICATION
     Route: 048

REACTIONS (4)
  - Dyspnoea [Not Recovered/Not Resolved]
  - Bacterial infection [Not Recovered/Not Resolved]
  - Suspected transmission of an infectious agent via product [Unknown]
  - Product quality issue [Unknown]
